FAERS Safety Report 7423658-1 (Version None)
Quarter: 2011Q2

REPORT INFORMATION
  Report Type: 
  Country: None (occurrence: None)
  Receive Date: 20110413
  Receipt Date: 20110413
  Transmission Date: 20111010
  Serious: No
  Sender: FDA-Public Use
  Company Number: None

PATIENT
  Age: 38 Year
  Sex: Female
  Weight: 147 kg

DRUGS (3)
  1. VANCOMYCIN [Suspect]
     Indication: CELLULITIS
     Dosage: 2000MG Q 12
     Dates: start: 20110330
  2. VANCOMYCIN [Suspect]
     Indication: CELLULITIS
     Dosage: 2000MG Q 12
     Dates: start: 20110403
  3. ZOSYN PREMIX (BAXTER) [Concomitant]

REACTIONS (2)
  - RENAL FAILURE ACUTE [None]
  - TUBULOINTERSTITIAL NEPHRITIS [None]
